FAERS Safety Report 5665538-8 (Version None)
Quarter: 2008Q1

REPORT INFORMATION
  Report Type: 
  Country: None (occurrence: None)
  Receive Date: 20080314
  Receipt Date: 20071212
  Transmission Date: 20080703
  Serious: No
  Sender: FDA-Public Use
  Company Number: US-ABBOTT-07P-163-0428826-00

PATIENT
  Sex: Male
  Weight: 102.2 kg

DRUGS (3)
  1. HUMIRA [Suspect]
     Indication: ANKYLOSING SPONDYLITIS
     Dosage: 40 MILLIGRAM Q TWO WEEK THEN
     Route: 058
     Dates: start: 20060101, end: 20060101
  2. HUMIRA [Suspect]
     Dosage: APPROXIMENTALY FIVE MONTH LATER
     Route: 058
     Dates: start: 20060101, end: 20070901
  3. HUMIRA [Suspect]
     Route: 058
     Dates: start: 20071001

REACTIONS (4)
  - ARTHRALGIA [None]
  - DRUG INEFFECTIVE [None]
  - MUSCULOSKELETAL STIFFNESS [None]
  - UPPER RESPIRATORY TRACT INFECTION [None]
